FAERS Safety Report 5193733-3 (Version None)
Quarter: 2006Q4

REPORT INFORMATION
  Report Type: 
  Country: None (occurrence: None)
  Receive Date: 20061228
  Receipt Date: 20061222
  Transmission Date: 20070319
  Serious: Yes (Hospitalization)
  Sender: FDA-Public Use
  Company Number: US-GLAXOSMITHKLINE-A0632588A

PATIENT
  Age: 80 Year
  Sex: Male

DRUGS (14)
  1. COREG [Suspect]
     Dosage: 12.5U TWICE PER DAY
     Route: 048
  2. WARFARIN SODIUM [Concomitant]
  3. ALLOPURINOL SODIUM [Concomitant]
  4. TEMAZEPAM [Concomitant]
  5. ISOSORBIDE DINITRATE [Concomitant]
  6. HYDRALAZINE HCL [Concomitant]
  7. NEXIUM [Concomitant]
  8. GEMFIBROZIL [Concomitant]
  9. TORSEMIDE [Concomitant]
  10. PROPOXYPHENE NAPSYLATE W/ ACETAMINOPHEN [Concomitant]
  11. SPIRONOLACTONE [Concomitant]
  12. VITAMINS [Concomitant]
  13. INSULIN [Concomitant]
  14. POLYSACCHARIDE-IRON COMPLEX [Concomitant]

REACTIONS (5)
  - CARDIAC FAILURE CONGESTIVE [None]
  - FATIGUE [None]
  - FLUID RETENTION [None]
  - LIVER DISORDER [None]
  - LIVER FUNCTION TEST ABNORMAL [None]
